FAERS Safety Report 12249499 (Version 1)
Quarter: 2016Q2

REPORT INFORMATION
  Report Type: Spontaneous
  Country: FR (occurrence: FR)
  Receive Date: 20160408
  Receipt Date: 20160408
  Transmission Date: 20160815
  Serious: Yes (Other)
  Sender: FDA-Public Use
  Company Number: FR-ASTRAZENECA-2016SE36076

PATIENT
  Age: 27879 Day
  Sex: Female

DRUGS (3)
  1. PULMICORT TBH [Suspect]
     Active Substance: BUDESONIDE
     Indication: ASTHMA
     Dosage: 1 DF IN THE EVENING
     Route: 055
  2. SYMBICORT [Suspect]
     Active Substance: BUDESONIDE\FORMOTEROL FUMARATE DIHYDRATE
     Indication: ASTHMA
     Dosage: 160/4.5 UG PER DOSE, ONE DF IN THE MORNING AND IN THE EVENING
     Route: 055
     Dates: start: 20160329, end: 20160330
  3. SYMBICORT [Suspect]
     Active Substance: BUDESONIDE\FORMOTEROL FUMARATE DIHYDRATE
     Indication: ASTHMA
     Dosage: 160/4.5 UG PER DOSE UNKNWON
     Route: 055
     Dates: start: 2015

REACTIONS (4)
  - Pharyngeal paraesthesia [Recovered/Resolved]
  - Drug ineffective [Unknown]
  - Asphyxia [Recovered/Resolved]
  - Cough [Unknown]

NARRATIVE: CASE EVENT DATE: 20160330
